FAERS Safety Report 6845583 (Version 2)
Quarter: 2013Q1

REPORT INFORMATION
  Report Type: Report from Study
  Country: US (occurrence: US)
  Receive Date: 20081212
  Receipt Date: 20130131
  Transmission Date: 20140127
  Serious: No
  Sender: FDA-Public Use
  Company Number: US-ABBOTT-08P-163-0476440-00

PATIENT
  Age: 46 Year
  Sex: Male
  Weight: 96.25 kg

DRUGS (3)
  1. HUMIRA [Suspect]
     Indication: PSORIATIC ARTHROPATHY
     Route: 058
     Dates: start: 2009, end: 2009
  2. HUMIRA [Suspect]
     Indication: PSORIASIS
  3. VICODIN [Concomitant]
     Indication: PAIN
     Dosage: ONCE EVERY 4-6 HOURS AS NEEDED
     Route: 048
     Dates: start: 200806

REACTIONS (11)
  - Feeling jittery [Not Recovered/Not Resolved]
  - Chest pain [Not Recovered/Not Resolved]
  - Dyspnoea [Unknown]
  - Drug ineffective [Not Recovered/Not Resolved]
  - Hyperhidrosis [Unknown]
  - Hypersensitivity [Unknown]
  - Palpitations [Unknown]
  - Dizziness [Unknown]
  - Feeling abnormal [Unknown]
  - Chest discomfort [Unknown]
  - Feeling abnormal [Unknown]
